FAERS Safety Report 5287502-3 (Version None)
Quarter: 2007Q1

REPORT INFORMATION
  Report Type: 
  Country: None (occurrence: None)
  Receive Date: 20070116
  Receipt Date: 20061003
  Transmission Date: 20070707
  Serious: No
  Sender: FDA-Public Use
  Company Number: 2006SP003514

PATIENT
  Age: 41 Year
  Sex: Female
  Weight: 67.1324 kg

DRUGS (3)
  1. LUNESTA [Suspect]
     Indication: INSOMNIA
     Dosage: 1 MG, HS, ORAL
     Route: 048
     Dates: start: 20060908
  2. LEVAQUIN [Suspect]
     Indication: SINUS DISORDER
     Dates: start: 20060908, end: 20060919
  3. TYLENOL [Concomitant]

REACTIONS (1)
  - PHOTOPHOBIA [None]
